FAERS Safety Report 7305236-8 (Version None)
Quarter: 2011Q1

REPORT INFORMATION
  Report Type: 
  Country: None (occurrence: None)
  Receive Date: 20110222
  Receipt Date: 20110215
  Transmission Date: 20110831
  Serious: Yes (Other)
  Sender: FDA-Public Use
  Company Number: US-PFIZER INC-2010144099

PATIENT
  Sex: Female
  Weight: 63 kg

DRUGS (18)
  1. LISINOPRIL [Concomitant]
     Indication: BLOOD PRESSURE ABNORMAL
     Dosage: 40 MG, 1X/DAY
     Route: 048
  2. PLAVIX [Concomitant]
     Dosage: 75 MG, 1X/DAY
     Route: 048
  3. LIPITOR [Concomitant]
     Indication: BLOOD CHOLESTEROL INCREASED
     Dosage: 40 MG, 1X/DAY QHS
     Route: 048
  4. EPITOL [Concomitant]
     Indication: BIPOLAR DISORDER
     Dosage: 200 MG, 2X/DAY
     Route: 048
  5. ACETYLSALICYLIC ACID [Concomitant]
     Indication: CARDIAC DISORDER
     Dosage: 81 MG, 1X/DAY
     Route: 048
  6. TEGRETOL [Concomitant]
     Dosage: 400 MG, 2X/DAY
  7. AMBIEN [Concomitant]
     Dosage: 12.5 MG EVERY HS
     Route: 048
  8. VENTOLIN [Concomitant]
     Dosage: 90 MCG/INH, 2 PUFFS 5 TIMES DAILY
     Route: 055
  9. METOPROLOL [Concomitant]
     Indication: BLOOD PRESSURE ABNORMAL
     Dosage: 100 MG, 1X/DAY
     Route: 048
  10. ADVAIR DISKUS 100/50 [Concomitant]
     Dosage: 250 MCG-50 MCG/INH ,INHALED,2 PUFF
     Route: 055
  11. CALCIUM CARBONATE [Concomitant]
     Dosage: UNK
  12. CHANTIX [Suspect]
     Indication: SMOKING CESSATION THERAPY
     Dosage: 1 MG, 2X/DAY
     Route: 048
     Dates: start: 20100701, end: 20100901
  13. IRON SULFATETHIAMIN COMPOUND TAB [Concomitant]
     Dosage: 325 MG, 1X/DAY
  14. VITAMIN D [Concomitant]
     Dosage: 1000 IU, TWO TABLETS
     Route: 048
  15. LEXAPRO [Concomitant]
     Dosage: 10 MG, 1X/DAY
     Route: 048
  16. AMLODIPINE [Concomitant]
     Dosage: 10 MG, 1X/DAY
     Route: 048
  17. CYMBALTA [Concomitant]
     Dosage: 60 MG, AT BEDTIME
     Route: 048
  18. DETROL LA [Concomitant]
     Indication: MICTURITION DISORDER
     Dosage: 4 MG, 1X/DAY
     Route: 048

REACTIONS (1)
  - WEIGHT DECREASED [None]
